FAERS Safety Report 7585714-7 (Version None)
Quarter: 2011Q3

REPORT INFORMATION
  Report Type: 
  Country: None (occurrence: None)
  Receive Date: 20110701
  Receipt Date: 20110616
  Transmission Date: 20111222
  Serious: Yes (Other)
  Sender: FDA-Public Use
  Company Number: US-BAYER-2011-017066

PATIENT
  Age: 34 Year
  Sex: Female
  Weight: 54.422 kg

DRUGS (3)
  1. CELEXA [Concomitant]
     Indication: AGITATION
     Dosage: UNK UNK, QD
     Dates: start: 20090301
  2. CELEXA [Concomitant]
     Indication: ANXIETY
  3. YAZ [Suspect]
     Indication: ACNE
     Dosage: UNK
     Route: 048
     Dates: start: 20080101, end: 20090801

REACTIONS (5)
  - CHOLECYSTITIS CHRONIC [None]
  - GALLBLADDER DISORDER [None]
  - PAIN [None]
  - SCAR [None]
  - BILIARY DYSKINESIA [None]
